FAERS Safety Report 21135204 (Version 1)
Quarter: 2022Q3

REPORT INFORMATION
  Report Type: Spontaneous
  Country: US (occurrence: US)
  Receive Date: 20220727
  Receipt Date: 20220727
  Transmission Date: 20221027
  Serious: Yes (Other)
  Sender: FDA-Public Use
  Company Number: US-GILEAD-2022-0590512

PATIENT
  Sex: Male

DRUGS (7)
  1. EPCLUSA [Suspect]
     Active Substance: SOFOSBUVIR\VELPATASVIR
     Indication: Chronic hepatitis C
     Dosage: 1 DOSAGE FORM, QD
     Route: 048
  2. MIRTAZAPINE [Suspect]
     Active Substance: MIRTAZAPINE
     Indication: Product used for unknown indication
     Route: 065
  3. LOTEPREDNOL ETABONATE [Concomitant]
     Active Substance: LOTEPREDNOL ETABONATE
  4. ALPRAZOLAM ER [Concomitant]
     Active Substance: ALPRAZOLAM
  5. AMLODIPINE BESYLATE [Concomitant]
     Active Substance: AMLODIPINE BESYLATE
  6. CELECOXIB [Concomitant]
     Active Substance: CELECOXIB
  7. CLONIDINE HYDROCHLORIDE [Concomitant]
     Active Substance: CLONIDINE HYDROCHLORIDE

REACTIONS (8)
  - Major depression [Unknown]
  - Ulcer haemorrhage [Unknown]
  - Irritability [Unknown]
  - Hiatus hernia [Unknown]
  - Bacterial test positive [Unknown]
  - Feeling abnormal [Unknown]
  - Depression [Unknown]
  - Pain [Unknown]
